FAERS Safety Report 8809285 (Version 1)
Quarter: 2012Q4

REPORT INFORMATION
  Report Type: Spontaneous
  Country: US (occurrence: None)
  Receive Date: 20120924
  Receipt Date: 20120924
  Transmission Date: 20130627
  Serious: Yes (Life-Threatening, Disabling)
  Sender: FDA-Public Use
  Company Number: None

PATIENT
  Age: 88 Year
  Sex: Male
  Weight: 72.58 kg

DRUGS (1)
  1. PROPOFOL [Suspect]
     Indication: SURGERY
     Dates: start: 20111130, end: 20111202

REACTIONS (4)
  - Atrial fibrillation [None]
  - Atrial flutter [None]
  - Delirium [None]
  - Mental status changes [None]
